FAERS Safety Report 26209871 (Version 1)
Quarter: 2025Q4

REPORT INFORMATION
  Report Type: Spontaneous
  Country: EU (occurrence: EU)
  Receive Date: 20251229
  Receipt Date: 20251229
  Transmission Date: 20260119
  Serious: Yes (Life-Threatening)
  Sender: BAUSCH AND LOMB
  Company Number: None

PATIENT
  Age: 74 Year
  Sex: Male

DRUGS (6)
  1. DEXAMETHASONE [Suspect]
     Active Substance: DEXAMETHASONE
     Indication: Bronchoscopy
     Route: 042
     Dates: start: 20250311, end: 20250311
  2. DEXAMETHASONE [Suspect]
     Active Substance: DEXAMETHASONE
     Dosage: DOSE REINTRODUCED
     Route: 065
  3. LIDOCAINE [Suspect]
     Active Substance: LIDOCAINE
     Indication: Bronchoscopy
     Route: 002
     Dates: start: 20250311, end: 20250311
  4. LIDOCAINE [Suspect]
     Active Substance: LIDOCAINE
     Dosage: DOSE REINTRODUCED
     Route: 065
  5. MIDAZOLAM [Suspect]
     Active Substance: MIDAZOLAM
     Indication: Bronchoscopy
     Route: 042
     Dates: start: 20250311, end: 20250311
  6. MIDAZOLAM [Suspect]
     Active Substance: MIDAZOLAM
     Dosage: DOSE REINTRODUCED
     Route: 065

REACTIONS (3)
  - Stress cardiomyopathy [Recovered/Resolved]
  - Chest pain [Recovered/Resolved]
  - Nausea [Recovered/Resolved]

NARRATIVE: CASE EVENT DATE: 20250311
